FAERS Safety Report 9112094 (Version 1)
Quarter: 2013Q1

REPORT INFORMATION
  Report Type: Spontaneous
  Country: US (occurrence: US)
  Receive Date: 20130219
  Receipt Date: 20130219
  Transmission Date: 20140127
  Serious: No
  Sender: FDA-Public Use
  Company Number: US-BRISTOL-MYERS SQUIBB COMPANY-17054354

PATIENT
  Age: 69 Year
  Sex: Male
  Weight: 82.54 kg

DRUGS (13)
  1. ABATACEPT SUBQ INJECTION 125MG/ML [Suspect]
     Indication: RHEUMATOID ARTHRITIS
     Dosage: 1DF:125MG/ML PFS (4 PACK),ORENCIA
     Route: 058
  2. NEXIUM [Concomitant]
     Dosage: CAPS
  3. FOLIC ACID [Concomitant]
     Dosage: TABS
  4. VYTORIN [Concomitant]
     Dosage: 1DF: 10-80MG TABS
  5. METOPROLOL [Concomitant]
  6. METHOTREXATE [Concomitant]
     Dosage: TABS
  7. PREDNISONE [Concomitant]
     Dosage: TAB
  8. PLAVIX TABS [Concomitant]
  9. VITAMIN B12 [Concomitant]
     Dosage: TAB
  10. MULTIVITAMIN [Concomitant]
     Dosage: CAPS
  11. HYDROCODONE + ACETAMINOPHEN [Concomitant]
     Dosage: 1DF: 7.5/500 TAB
  12. LEVOTHYROXIN [Concomitant]
     Dosage: TABS
  13. CELEBREX [Concomitant]
     Dosage: CAPS

REACTIONS (1)
  - Pain in extremity [Unknown]
